FAERS Safety Report 16804569 (Version 1)
Quarter: 2019Q3

REPORT INFORMATION
  Report Type: Spontaneous
  Country: JP (occurrence: JP)
  Receive Date: 20190913
  Receipt Date: 20190913
  Transmission Date: 20191005
  Serious: Yes (Hospitalization, Other)
  Sender: FDA-Public Use
  Company Number: JP-ACTELION-A-CH2019-195076

PATIENT
  Age: 5 Month
  Weight: 3.1 kg

DRUGS (3)
  1. BERAPROST [Concomitant]
     Active Substance: BERAPROST
     Indication: PULMONARY HYPERTENSION
  2. EPOPROSTENOL SODIUM. [Concomitant]
     Active Substance: EPOPROSTENOL SODIUM
     Indication: PULMONARY HYPERTENSION
     Dosage: 106 NG/KG, PER MIN
     Route: 042
  3. OPSUMIT [Suspect]
     Active Substance: MACITENTAN
     Indication: PULMONARY HYPERTENSION
     Route: 048

REACTIONS (5)
  - Flushing [Unknown]
  - Oesophagogastric fundoplasty [Unknown]
  - Pulmonary hypertension [Unknown]
  - Pruritus [Unknown]
  - Gastrostomy [Unknown]
